FAERS Safety Report 7043365-7 (Version None)
Quarter: 2010Q4

REPORT INFORMATION
  Report Type: 
  Country: None (occurrence: None)
  Receive Date: 20101013
  Receipt Date: 20101008
  Transmission Date: 20110411
  Serious: Yes (Hospitalization, Other)
  Sender: FDA-Public Use
  Company Number: US-AMGEN-KDL434309

PATIENT
  Sex: Female
  Weight: 148.9 kg

DRUGS (5)
  1. ENBREL [Suspect]
     Indication: RHEUMATOID ARTHRITIS
     Route: 058
     Dates: start: 20100506
  2. METHOTREXATE [Concomitant]
     Route: 058
     Dates: start: 20050101
  3. ZOLOFT [Concomitant]
     Route: 048
  4. LOTENSIN [Concomitant]
     Route: 048
     Dates: start: 20100901
  5. NORVASC [Concomitant]
     Route: 048
     Dates: start: 20100901

REACTIONS (4)
  - ATRIAL FIBRILLATION [None]
  - BLOOD PRESSURE INCREASED [None]
  - EPISTAXIS [None]
  - PNEUMONIA [None]
